FAERS Safety Report 7063287-5 (Version None)
Quarter: 2010Q4

REPORT INFORMATION
  Report Type: 
  Country: None (occurrence: None)
  Receive Date: 20101026
  Receipt Date: 20100621
  Transmission Date: 20110411
  Serious: No
  Sender: FDA-Public Use
  Company Number: US-PFIZER INC-2010077924

PATIENT
  Sex: Female
  Weight: 44 kg

DRUGS (3)
  1. LIPITOR [Suspect]
     Indication: BLOOD CHOLESTEROL INCREASED
     Dosage: 20 MG, 1X/DAY
     Route: 048
     Dates: end: 20100601
  2. LIPITOR [Suspect]
     Dosage: 10 MG, 1X/DAY
     Dates: start: 20080101, end: 20100601
  3. BENICAR [Concomitant]
     Dosage: UNK

REACTIONS (1)
  - ALOPECIA [None]
